FAERS Safety Report 4591687-1 (Version None)
Quarter: 2005Q1

REPORT INFORMATION
  Report Type: 
  Country: None (occurrence: None)
  Receive Date: 20050222
  Receipt Date: 20050207
  Transmission Date: 20050727
  Serious: Yes (Hospitalization, Other)
  Sender: FDA-Public Use
  Company Number: 2005026554

PATIENT
  Age: 75 Year
  Sex: Male
  Weight: 58 kg

DRUGS (8)
  1. FLUCONAZOLE [Suspect]
     Indication: ILL-DEFINED DISORDER
     Dosage: SEE IMAGE, INTRAVENOUS
     Route: 042
     Dates: start: 20041113, end: 20041118
  2. FLUCONAZOLE [Suspect]
     Indication: ILL-DEFINED DISORDER
     Dosage: SEE IMAGE, INTRAVENOUS
     Route: 042
     Dates: start: 20041027
  3. OMEPRAZOLE [Suspect]
     Indication: ILL-DEFINED DISORDER
     Dosage: SEE IMAGE
     Dates: start: 20041113, end: 20041118
  4. OMEPRAZOLE [Suspect]
     Indication: ILL-DEFINED DISORDER
     Dosage: SEE IMAGE
     Dates: start: 20041027
  5. ENOXAPARIN SODIUM [Suspect]
     Indication: ILL-DEFINED DISORDER
     Dosage: 20 MG, SUBCUTANEOUS
     Route: 058
     Dates: start: 20041105, end: 20041114
  6. HEPARIN SODIUM [Suspect]
     Indication: ILL-DEFINED DISORDER
     Dosage: 400 I.U., INTRAVENOUS
     Route: 042
     Dates: start: 20041113, end: 20041114
  7. PRIMAXIN [Suspect]
     Indication: ILL-DEFINED DISORDER
     Dosage: (1000 MG, 3 IN 1 D), INTRAVENOUS
     Route: 042
     Dates: end: 20041117
  8. VANCOMYCIN HYDROCHLORIDE (VANCOMYCIN HYDROCHLORIDE) [Concomitant]

REACTIONS (13)
  - ABDOMINAL PAIN [None]
  - ENTEROCOCCAL INFECTION [None]
  - HAEMOGLOBIN DECREASED [None]
  - HEPARIN-INDUCED THROMBOCYTOPENIA [None]
  - INGUINAL HERNIA [None]
  - INTESTINAL ISCHAEMIA [None]
  - INTESTINAL PERFORATION [None]
  - PERITONITIS [None]
  - POST PROCEDURAL COMPLICATION [None]
  - RED BLOOD CELL COUNT DECREASED [None]
  - SEPTIC SHOCK [None]
  - SUBILEUS [None]
  - THROMBOCYTOPENIA [None]
